FAERS Safety Report 9846655 (Version 1)
Quarter: 2014Q1

REPORT INFORMATION
  Report Type: Spontaneous
  Country: US (occurrence: None)
  Receive Date: 20140123
  Receipt Date: 20140123
  Transmission Date: 20141002
  Serious: Yes (Other)
  Sender: FDA-Public Use
  Company Number: None

PATIENT
  Age: 44 Year
  Sex: 0
  Weight: 63.5 kg

DRUGS (3)
  1. TECFIDERA 240MG BIOGEN [Suspect]
     Indication: MULTIPLE SCLEROSIS
     Dosage: 1 PILL BID ORAL
     Route: 048
  2. EFFEXOR [Concomitant]
  3. DICOFLENAC [Concomitant]

REACTIONS (1)
  - Muscle spasms [None]
